FAERS Safety Report 8590962-3 (Version None)
Quarter: 2012Q3

REPORT INFORMATION
  Report Type: 
  Country: None (occurrence: None)
  Receive Date: 20120813
  Receipt Date: 20120731
  Transmission Date: 20120928
  Serious: Yes (Hospitalization)
  Sender: FDA-Public Use
  Company Number: JP-BAXTER-2012BAX013393

PATIENT
  Sex: Male

DRUGS (4)
  1. DIANEAL PD-2 W/ DEXTROSE 4.25% [Suspect]
     Indication: RENAL FAILURE CHRONIC
  2. DIANEAL PD-2 W/ DEXTROSE 4.25% [Suspect]
     Indication: DIABETIC NEPHROPATHY
     Route: 033
     Dates: start: 20091117
  3. EXTRANEAL [Suspect]
     Indication: DIABETIC NEPHROPATHY
     Route: 033
     Dates: start: 20091117
  4. EXTRANEAL [Suspect]
     Indication: RENAL FAILURE CHRONIC

REACTIONS (2)
  - LOWER EXTREMITY MASS [None]
  - CONTRAST MEDIA ALLERGY [None]
